FAERS Safety Report 7201208-2 (Version None)
Quarter: 2010Q4

REPORT INFORMATION
  Report Type: 
  Country: None (occurrence: None)
  Receive Date: 20101227
  Receipt Date: 20101227
  Transmission Date: 20110411
  Serious: Yes (Hospitalization)
  Sender: FDA-Public Use
  Company Number: None

PATIENT
  Sex: Female
  Weight: 65 kg

DRUGS (3)
  1. ZOMETA [Suspect]
     Dosage: 4 MG
  2. CALCIUM CARBONATE [Suspect]
     Dosage: 3600 MG
  3. VITAMIN D2 [Suspect]
     Dosage: 2400 UNIT

REACTIONS (14)
  - ABDOMINAL PAIN LOWER [None]
  - ASCITES [None]
  - BLOOD ALKALINE PHOSPHATASE INCREASED [None]
  - COMPUTERISED TOMOGRAM ABNORMAL [None]
  - CONFUSIONAL STATE [None]
  - FALL [None]
  - FATIGUE [None]
  - GAIT DISTURBANCE [None]
  - GENERAL PHYSICAL HEALTH DETERIORATION [None]
  - HEAD INJURY [None]
  - JAUNDICE [None]
  - METABOLIC DISORDER [None]
  - PLEURAL EFFUSION [None]
  - SUBDURAL HAEMATOMA [None]
